FAERS Safety Report 20204411 (Version 1)
Quarter: 2021Q4

REPORT INFORMATION
  Report Type: Spontaneous
  Country: FR (occurrence: FR)
  Receive Date: 20211220
  Receipt Date: 20211220
  Transmission Date: 20220303
  Serious: Yes (Other)
  Sender: FDA-Public Use
  Company Number: None

PATIENT
  Age: 89 Year
  Sex: Female

DRUGS (2)
  1. LEVOFLOXACIN [Interacting]
     Active Substance: LEVOFLOXACIN
     Indication: Eye infection staphylococcal
     Dosage: 1 GRAM
     Route: 048
     Dates: start: 20211018, end: 20211025
  2. PREDNISONE [Interacting]
     Active Substance: PREDNISONE
     Indication: Polymyalgia rheumatica
     Dosage: 2 MG, THERAPY START DATE: ASKU, THERAPY END DATE: NASK
     Route: 048

REACTIONS (2)
  - Drug interaction [Recovering/Resolving]
  - Tendon disorder [Recovering/Resolving]

NARRATIVE: CASE EVENT DATE: 20211023
